FAERS Safety Report 8640335 (Version 2)
Quarter: 2013Q2

REPORT INFORMATION
  Report Type: Report from Study
  Country: US (occurrence: US)
  Receive Date: 20120628
  Receipt Date: 20130627
  Transmission Date: 20140414
  Serious: Yes (Other)
  Sender: FDA-Public Use
  Company Number: US-MYLANLABS-2012S1006904

PATIENT
  Age: 22 Year
  Sex: Male
  Weight: 114.31 kg

DRUGS (8)
  1. CLOZAPINE TABLETS [Suspect]
     Indication: INTERMITTENT EXPLOSIVE DISORDER
     Route: 048
     Dates: start: 20120220, end: 20120406
  2. CLOZAPINE TABLETS [Suspect]
     Indication: MODERATE MENTAL RETARDATION
     Route: 048
     Dates: start: 20120220, end: 20120406
  3. CLOZAPINE TABLETS [Suspect]
     Indication: INTERMITTENT EXPLOSIVE DISORDER
     Route: 048
     Dates: start: 201204
  4. CLOZAPINE TABLETS [Suspect]
     Indication: MODERATE MENTAL RETARDATION
     Route: 048
     Dates: start: 201204
  5. LEVOTHYROXINE [Concomitant]
  6. NEXIUM [Concomitant]
  7. DEPAKOTE ER [Concomitant]
  8. CEPHALEXIN [Concomitant]
     Dates: start: 201203, end: 201203

REACTIONS (1)
  - Granulocytopenia [Not Recovered/Not Resolved]
